FAERS Safety Report 15076935 (Version 2)
Quarter: 2020Q3

REPORT INFORMATION
  Report Type: Report from Study
  Country: KR (occurrence: KR)
  Receive Date: 20180627
  Receipt Date: 20180706
  Transmission Date: 20201105
  Serious: No
  Sender: FDA-Public Use
  Company Number: KR-ASTRAZENECA-2018SE81513

PATIENT
  Age: 730 Month
  Sex: Male

DRUGS (39)
  1. TREMELIMUMAB. [Suspect]
     Active Substance: TREMELIMUMAB
     Indication: SMALL CELL LUNG CANCER
     Route: 042
     Dates: start: 20171227, end: 20171227
  2. ETOPOSIDE. [Suspect]
     Active Substance: ETOPOSIDE
     Indication: SMALL CELL LUNG CANCER
     Dosage: 191 MG/M2
     Route: 065
     Dates: start: 20170818, end: 20170818
  3. ETOPOSIDE. [Suspect]
     Active Substance: ETOPOSIDE
     Indication: SMALL CELL LUNG CANCER
     Dosage: 193 MG/M2
     Route: 065
     Dates: start: 20170905, end: 20170905
  4. CARBOPLATIN. [Suspect]
     Active Substance: CARBOPLATIN
     Indication: SMALL CELL LUNG CANCER
     Dosage: 5 AUC
     Route: 065
     Dates: start: 20170816, end: 20170816
  5. CALTEO?40 [Concomitant]
     Indication: HYPOPARATHYROIDISM
     Route: 048
     Dates: start: 20170929
  6. MEDI4736 [Suspect]
     Active Substance: DURVALUMAB
     Indication: SMALL CELL LUNG CANCER
     Route: 042
     Dates: start: 20170816, end: 20170816
  7. ETOPOSIDE. [Suspect]
     Active Substance: ETOPOSIDE
     Indication: SMALL CELL LUNG CANCER
     Dosage: 191 MG/M2
     Route: 065
     Dates: start: 20170817, end: 20170817
  8. ETOPOSIDE. [Suspect]
     Active Substance: ETOPOSIDE
     Indication: SMALL CELL LUNG CANCER
     Dosage: 192 MG/M2
     Route: 065
     Dates: start: 20171020, end: 20171020
  9. MEDI4736 [Suspect]
     Active Substance: DURVALUMAB
     Indication: SMALL CELL LUNG CANCER
     Route: 042
     Dates: start: 20180312, end: 20180312
  10. ETOPOSIDE. [Suspect]
     Active Substance: ETOPOSIDE
     Indication: SMALL CELL LUNG CANCER
     Dosage: 191 MG/M2
     Route: 065
     Dates: start: 20170816, end: 20170816
  11. HYDROXYZINE [Concomitant]
     Active Substance: HYDROXYZINE HYDROCHLORIDE
     Indication: PRURITUS
     Route: 048
     Dates: start: 20170829
  12. MEDI4736 [Suspect]
     Active Substance: DURVALUMAB
     Indication: SMALL CELL LUNG CANCER
     Route: 042
     Dates: start: 20171018, end: 20171018
  13. ETOPOSIDE. [Suspect]
     Active Substance: ETOPOSIDE
     Indication: SMALL CELL LUNG CANCER
     Dosage: 191 MG/M2
     Route: 065
     Dates: start: 20170726, end: 20170726
  14. ETOPOSIDE. [Suspect]
     Active Substance: ETOPOSIDE
     Indication: SMALL CELL LUNG CANCER
     Dosage: 192 MG/M2
     Route: 065
     Dates: start: 20171018, end: 20171018
  15. CARBOPLATIN. [Suspect]
     Active Substance: CARBOPLATIN
     Indication: SMALL CELL LUNG CANCER
     Dosage: 5 AUC
     Route: 065
     Dates: start: 20170724, end: 20170724
  16. DESONIDE. [Concomitant]
     Active Substance: DESONIDE
     Indication: PRURITUS
     Dosage: 0.05% AS REQUIRED
     Route: 055
     Dates: start: 20170816
  17. CALCITRIOL. [Concomitant]
     Active Substance: CALCITRIOL
     Indication: HYPOPARATHYROIDISM
     Route: 048
     Dates: start: 20170929
  18. MEDI4736 [Suspect]
     Active Substance: DURVALUMAB
     Indication: SMALL CELL LUNG CANCER
     Route: 042
     Dates: start: 20180508, end: 20180508
  19. TREMELIMUMAB. [Suspect]
     Active Substance: TREMELIMUMAB
     Indication: SMALL CELL LUNG CANCER
     Route: 042
     Dates: start: 20170905, end: 20170905
  20. ETOPOSIDE. [Suspect]
     Active Substance: ETOPOSIDE
     Indication: SMALL CELL LUNG CANCER
     Dosage: 193 MG/M2
     Route: 065
     Dates: start: 20170907, end: 20170907
  21. ETOPOSIDE. [Suspect]
     Active Substance: ETOPOSIDE
     Indication: SMALL CELL LUNG CANCER
     Dosage: 192 MG/M2
     Route: 065
     Dates: start: 20171019, end: 20171019
  22. MEDI4736 [Suspect]
     Active Substance: DURVALUMAB
     Indication: SMALL CELL LUNG CANCER
     Route: 042
     Dates: start: 20171122, end: 20171122
  23. MEDI4736 [Suspect]
     Active Substance: DURVALUMAB
     Indication: SMALL CELL LUNG CANCER
     Route: 042
     Dates: start: 20171227, end: 20171227
  24. ETOPOSIDE. [Suspect]
     Active Substance: ETOPOSIDE
     Indication: SMALL CELL LUNG CANCER
     Dosage: 193 MG/M2
     Route: 065
     Dates: start: 20170906, end: 20170906
  25. LEVOCETIRIZINE [Concomitant]
     Active Substance: LEVOCETIRIZINE
     Indication: PRURITUS
     Route: 048
     Dates: start: 20170829
  26. DICAMAX [Concomitant]
     Indication: HYPOPARATHYROIDISM
     Route: 048
     Dates: start: 20171010
  27. MEDI4736 [Suspect]
     Active Substance: DURVALUMAB
     Indication: SMALL CELL LUNG CANCER
     Route: 042
     Dates: start: 20180212, end: 20180212
  28. CARBOPLATIN. [Suspect]
     Active Substance: CARBOPLATIN
     Indication: SMALL CELL LUNG CANCER
     Dosage: 5 AUC
     Route: 065
     Dates: start: 20171018, end: 20171018
  29. SPIRIVA [Concomitant]
     Active Substance: TIOTROPIUM BROMIDE MONOHYDRATE
     Indication: CHRONIC OBSTRUCTIVE PULMONARY DISEASE
     Route: 055
     Dates: start: 20170801
  30. TRIAMCINOLONE [Concomitant]
     Active Substance: TRIAMCINOLONE
     Indication: SINUSITIS
     Dosage: 0.5G AS REQUIRED
     Route: 003
     Dates: start: 20170922
  31. CALCIUM GLUCONATE. [Concomitant]
     Active Substance: CALCIUM GLUCONATE
     Indication: HYPOPARATHYROIDISM
     Dosage: 2.0G AS REQUIRED
     Route: 042
     Dates: start: 20171011
  32. MEDI4736 [Suspect]
     Active Substance: DURVALUMAB
     Indication: SMALL CELL LUNG CANCER
     Route: 042
     Dates: start: 20170724, end: 20170724
  33. MEDI4736 [Suspect]
     Active Substance: DURVALUMAB
     Indication: SMALL CELL LUNG CANCER
     Route: 042
     Dates: start: 20170905, end: 20170905
  34. TREMELIMUMAB. [Suspect]
     Active Substance: TREMELIMUMAB
     Indication: SMALL CELL LUNG CANCER
     Route: 042
     Dates: start: 20170724, end: 20170724
  35. TREMELIMUMAB. [Suspect]
     Active Substance: TREMELIMUMAB
     Indication: SMALL CELL LUNG CANCER
     Route: 042
     Dates: start: 20170816, end: 20170816
  36. TREMELIMUMAB. [Suspect]
     Active Substance: TREMELIMUMAB
     Indication: SMALL CELL LUNG CANCER
     Route: 042
     Dates: start: 20171018, end: 20171018
  37. ETOPOSIDE. [Suspect]
     Active Substance: ETOPOSIDE
     Indication: SMALL CELL LUNG CANCER
     Dosage: 191 MG/M2
     Route: 065
     Dates: start: 20170724, end: 20170724
  38. ETOPOSIDE. [Suspect]
     Active Substance: ETOPOSIDE
     Indication: SMALL CELL LUNG CANCER
     Dosage: 191 MG/M2
     Route: 065
     Dates: start: 20170725, end: 20170725
  39. CARBOPLATIN. [Suspect]
     Active Substance: CARBOPLATIN
     Indication: SMALL CELL LUNG CANCER
     Dosage: 5 AUC
     Route: 065
     Dates: start: 20170905, end: 20170905

REACTIONS (1)
  - Hypoparathyroidism [Recovered/Resolved]

NARRATIVE: CASE EVENT DATE: 20171219
